FAERS Safety Report 16663577 (Version 1)
Quarter: 2019Q3

REPORT INFORMATION
  Report Type: Spontaneous
  Country: IL (occurrence: IL)
  Receive Date: 20190802
  Receipt Date: 20190802
  Transmission Date: 20191004
  Serious: No
  Sender: FDA-Public Use
  Company Number: IL-EXELIXIS-CABO-19021442

PATIENT
  Age: 64 Year
  Sex: Male

DRUGS (1)
  1. CABOMETYX [Suspect]
     Active Substance: CABOZANTINIB S-MALATE
     Indication: ADENOCARCINOMA PANCREAS
     Dosage: 100 MG, QD

REACTIONS (3)
  - Dermatitis acneiform [Unknown]
  - Off label use [Unknown]
  - Malignant neoplasm progression [Unknown]
